FAERS Safety Report 16583414 (Version 1)
Quarter: 2019Q3

REPORT INFORMATION
  Report Type: Spontaneous
  Country: US (occurrence: US)
  Receive Date: 20190716
  Receipt Date: 20190716
  Transmission Date: 20191004
  Serious: Yes (Hospitalization)
  Sender: FDA-Public Use
  Company Number: None

PATIENT
  Sex: Female

DRUGS (3)
  1. HUMIRA [Suspect]
     Active Substance: ADALIMUMAB
     Indication: RHEUMATOID ARTHRITIS
     Dosage: ?          OTHER FREQUENCY:EVERY TWO WEEKS;?
     Route: 058
     Dates: start: 20180116
  2. METHOTREXATE, PLAQUENIL, KLOR-CON SPR [Concomitant]
     Dates: start: 20180108
  3. VALSARTAN, FOLIC ACID, LEVOTHYROXINE [Concomitant]
     Dates: start: 20180108

REACTIONS (2)
  - Therapy cessation [None]
  - Surgery [None]
